FAERS Safety Report 22130821 (Version 1)
Quarter: 2023Q1

REPORT INFORMATION
  Report Type: Report from Study
  Country: CN (occurrence: CN)
  Receive Date: 20230323
  Receipt Date: 20230323
  Transmission Date: 20230418
  Serious: Yes (Hospitalization, Other)
  Sender: FDA-Public Use
  Company Number: CN-TAKEDA-2023TUS028158

PATIENT
  Age: 21 Year
  Sex: Female
  Weight: 53 kg

DRUGS (15)
  1. VEDOLIZUMAB [Suspect]
     Active Substance: VEDOLIZUMAB
     Indication: Crohn^s disease
     Dosage: 300 MILLIGRAM
     Route: 042
     Dates: start: 20221111
  2. ETIMICIN SULFATE [Concomitant]
     Active Substance: ETIMICIN SULFATE
     Indication: Antiinflammatory therapy
     Dosage: 6 MILLILITER, QD
     Route: 042
     Dates: start: 20221212, end: 20221224
  3. Compound glutamine [Concomitant]
     Indication: Gastrointestinal mucosal disorder
     Dosage: UNK UNK, TID
     Route: 048
     Dates: start: 20221212, end: 20221217
  4. Compound glutamine [Concomitant]
     Dosage: UNK UNK, TID
     Route: 048
     Dates: start: 20221217, end: 20221226
  5. MESALAMINE [Concomitant]
     Active Substance: MESALAMINE
     Indication: Inflammatory bowel disease
     Dosage: 2000 MILLIGRAM, BID
     Route: 048
     Dates: start: 20221212, end: 20221226
  6. MONTMORILLONITE [Concomitant]
     Active Substance: MONTMORILLONITE
     Indication: Diarrhoea
     Dosage: 6 GRAM, TID
     Route: 048
     Dates: start: 20221213, end: 20221226
  7. Anso [Concomitant]
     Indication: Malnutrition
     Dosage: UNK UNK, TID
     Route: 048
     Dates: start: 20221213, end: 20221226
  8. Anso [Concomitant]
     Indication: Diarrhoea
  9. POTASSIUM CHLORIDE [Concomitant]
     Active Substance: POTASSIUM CHLORIDE
     Indication: Mineral supplementation
     Dosage: 1.5 GRAM, QD
     Route: 042
     Dates: start: 20221213, end: 20221224
  10. AMBROXOL HYDROCHLORIDE [Concomitant]
     Active Substance: AMBROXOL HYDROCHLORIDE
     Indication: Cough
     Dosage: 30 MILLIGRAM, BID
     Route: 042
     Dates: start: 20221214, end: 20221221
  11. OMEPRAZOLE SODIUM [Concomitant]
     Active Substance: OMEPRAZOLE SODIUM
     Indication: Abdominal discomfort
     Dosage: 40 MILLIGRAM, QD
     Route: 042
     Dates: start: 20221215, end: 20221224
  12. OCTREOTIDE ACETATE [Concomitant]
     Active Substance: OCTREOTIDE ACETATE
     Dosage: 0.1 MILLIGRAM, Q8HR
     Route: 058
     Dates: start: 20221223, end: 20221224
  13. SOMATOSTATIN [Concomitant]
     Active Substance: SOMATOSTATIN
     Indication: Diarrhoea
     Dosage: 6 MILLIGRAM, QD
     Route: 042
     Dates: start: 20221213, end: 20221214
  14. SOMATOSTATIN [Concomitant]
     Active Substance: SOMATOSTATIN
     Dosage: 6 MILLIGRAM, BID
     Route: 042
     Dates: start: 20221215, end: 20221221
  15. SOMATOSTATIN [Concomitant]
     Active Substance: SOMATOSTATIN
     Dosage: 6 MILLIGRAM, QD
     Route: 042
     Dates: start: 20221222, end: 20221222

REACTIONS (1)
  - COVID-19 pneumonia [Recovered/Resolved]

NARRATIVE: CASE EVENT DATE: 20221212
